FAERS Safety Report 11867413 (Version 1)
Quarter: 2015Q4

REPORT INFORMATION
  Report Type: Spontaneous
  Country: US (occurrence: None)
  Receive Date: 20151223
  Receipt Date: 20151223
  Transmission Date: 20160305
  Serious: Yes (Other)
  Sender: FDA-Public Use
  Company Number: None

PATIENT
  Age: 46 Year
  Sex: Female
  Weight: 78.47 kg

DRUGS (12)
  1. IRON [Concomitant]
     Active Substance: IRON
  2. SUDAFED [Concomitant]
     Active Substance: PSEUDOEPHEDRINE HYDROCHLORIDE
  3. PAXIL [Concomitant]
     Active Substance: PAROXETINE HYDROCHLORIDE
  4. ALPRAZOLAM. [Concomitant]
     Active Substance: ALPRAZOLAM
  5. LINSINOPRIL 40MG MERCK [Concomitant]
     Active Substance: LISINOPRIL
  6. SIMVASTATIN. [Concomitant]
     Active Substance: SIMVASTATIN
  7. PROBIOTIC [Concomitant]
     Active Substance: PROBIOTICS NOS
  8. HYDROCODON-ACETAMINOPHIN10 [Suspect]
     Active Substance: ACETAMINOPHEN\HYDROCODONE
     Indication: EXOSTOSIS
     Dosage: 10-325 MG TAKE 1 TABLET BY MOUTH EVERY 5 HOURS AS NEEDED BY MOUTH
     Route: 048
     Dates: start: 20151007, end: 20151221
  9. BUTALB-ACETAMIN-CAFFEINE [Concomitant]
  10. VITAMIN B12 [Concomitant]
     Active Substance: CYANOCOBALAMIN
  11. ESTRODIAL [Concomitant]
  12. IBUPROPHIN [Concomitant]

REACTIONS (1)
  - Colitis [None]

NARRATIVE: CASE EVENT DATE: 20151206
